FAERS Safety Report 8231845-8 (Version None)
Quarter: 2012Q1

REPORT INFORMATION
  Report Type: 
  Country: None (occurrence: None)
  Receive Date: 20120323
  Receipt Date: 20120316
  Transmission Date: 20120608
  Serious: Yes (Hospitalization)
  Sender: FDA-Public Use
  Company Number: BR-GILEAD-2012-0052544

PATIENT
  Age: 46 Year
  Sex: Male

DRUGS (3)
  1. AMBRISENTAN [Suspect]
     Indication: EISENMENGER'S SYNDROME
  2. VASODILATOR [Suspect]
     Indication: PRODUCT USED FOR UNKNOWN INDICATION
     Dosage: UNK
  3. AMBRISENTAN [Suspect]
     Indication: PULMONARY HYPERTENSION
     Route: 065

REACTIONS (2)
  - ARTHRITIS INFECTIVE [None]
  - GENERALISED OEDEMA [None]
